FAERS Safety Report 9972728 (Version 1)
Quarter: 2014Q1

REPORT INFORMATION
  Report Type: Spontaneous
  Country: US (occurrence: US)
  Receive Date: 20140306
  Receipt Date: 20140306
  Transmission Date: 20141002
  Serious: No
  Sender: FDA-Public Use
  Company Number: US-PFIZER INC-2014058660

PATIENT
  Age: 77 Year
  Sex: Female
  Weight: 90.7 kg

DRUGS (5)
  1. IBUPROFEN [Suspect]
     Indication: PAIN
     Dosage: UNK
  2. IBUPROFEN [Suspect]
     Indication: MUSCLE SPASMS
  3. IBUPROFEN [Suspect]
     Indication: ARTHRITIS
  4. DICLOFENAC [Concomitant]
     Indication: PAIN
     Dosage: 50 MG, TWO TIMES A DAY
  5. DICLOFENAC [Concomitant]
     Indication: ARTHRITIS

REACTIONS (1)
  - Abdominal discomfort [Unknown]
